FAERS Safety Report 22608160 (Version 1)
Quarter: 2023Q2

REPORT INFORMATION
  Report Type: Spontaneous
  Country: PT (occurrence: PT)
  Receive Date: 20230616
  Receipt Date: 20230616
  Transmission Date: 20230722
  Serious: Yes (Death, Hospitalization, Other)
  Sender: FDA-Public Use
  Company Number: PT-TWI PHARMACEUTICAL, INC-2023SCTW000028

PATIENT

DRUGS (2)
  1. BUPROPION HYDROCHLORIDE XL [Suspect]
     Active Substance: BUPROPION HYDROCHLORIDE
     Indication: Depression
     Dosage: 2100 MG, SINGLE
  2. BUPROPION HYDROCHLORIDE XL [Suspect]
     Active Substance: BUPROPION HYDROCHLORIDE
     Dosage: 300 MG, OD
     Route: 065

REACTIONS (8)
  - Cardio-respiratory arrest [Fatal]
  - Impulsive behaviour [Unknown]
  - Intentional product misuse [Unknown]
  - Drug dependence [Unknown]
  - Drug abuse [Unknown]
  - Acute myocardial infarction [Unknown]
  - Irritability [Unknown]
  - Intentional overdose [Unknown]
